FAERS Safety Report 11909841 (Version 1)
Quarter: 2016Q1

REPORT INFORMATION
  Report Type: Spontaneous
  Country: US (occurrence: US)
  Receive Date: 20160112
  Receipt Date: 20160112
  Transmission Date: 20160526
  Serious: No
  Sender: FDA-Public Use
  Company Number: US-TEVA-614763USA

PATIENT
  Age: 15 Year
  Sex: Female
  Weight: 48.12 kg

DRUGS (1)
  1. PROAIR RESPICLICK [Suspect]
     Active Substance: ALBUTEROL SULFATE
     Indication: ASTHMA
     Dosage: 2 PUFFS PRN
     Route: 055

REACTIONS (2)
  - Pruritus [Unknown]
  - Urticaria [Unknown]
